FAERS Safety Report 15572608 (Version 4)
Quarter: 2019Q1

REPORT INFORMATION
  Report Type: Report from Study
  Country: US (occurrence: US)
  Receive Date: 20181031
  Receipt Date: 20190315
  Transmission Date: 20190417
  Serious: Yes (Other)
  Sender: FDA-Public Use
  Company Number: US-REGENERON PHARMACEUTICALS, INC.-2018-42208

PATIENT

DRUGS (2)
  1. EYLEA [Suspect]
     Active Substance: AFLIBERCEPT
     Indication: RETINAL VEIN OCCLUSION
     Dosage: 0.05CC, EVERY 6 WEEKS
     Route: 031
     Dates: start: 20170221, end: 20171117
  2. EYLEA [Suspect]
     Active Substance: AFLIBERCEPT
     Indication: DIABETIC RETINAL OEDEMA

REACTIONS (2)
  - Non-infectious endophthalmitis [Recovered/Resolved]
  - Vitrectomy [Unknown]

NARRATIVE: CASE EVENT DATE: 201711
